FAERS Safety Report 17168605 (Version 2)
Quarter: 2019Q4

REPORT INFORMATION
  Report Type: Report from Study
  Country: CA (occurrence: CA)
  Receive Date: 20191218
  Receipt Date: 20191230
  Transmission Date: 20200122
  Serious: Yes (Other)
  Sender: FDA-Public Use
  Company Number: CA-BEH-2019110587

PATIENT
  Age: 40 Year
  Sex: Female

DRUGS (11)
  1. BERINERT [Suspect]
     Active Substance: HUMAN C1-ESTERASE INHIBITOR
     Indication: HEREDITARY ANGIOEDEMA WITH NORMAL C1 ESTERASE INHIBITOR
     Dosage: 4500 INTERNATIONAL UNIT, TIW (PHROPHYLACTIC)
     Route: 058
     Dates: start: 20170903
  2. BERINERT [Suspect]
     Active Substance: HUMAN C1-ESTERASE INHIBITOR
     Indication: PROPHYLAXIS
     Dosage: 1500 INTERNATIONAL UNIT, PRN
     Route: 042
     Dates: start: 20170903
  3. BERINERT [Suspect]
     Active Substance: HUMAN C1-ESTERASE INHIBITOR
     Indication: PROPHYLAXIS
     Dosage: 1500 INTERNATIONAL UNIT, PRN
     Route: 042
     Dates: start: 20170903
  4. TYLENOL [Concomitant]
     Active Substance: ACETAMINOPHEN
  5. BERINERT [Suspect]
     Active Substance: HUMAN C1-ESTERASE INHIBITOR
     Dosage: 5000 INTERNATIONAL UNIT, TIW
     Route: 058
  6. DULOXETINE. [Concomitant]
     Active Substance: DULOXETINE
  7. BERINERT [Suspect]
     Active Substance: HUMAN C1-ESTERASE INHIBITOR
     Dosage: 5000 INTERNATIONAL UNIT, TIW
     Route: 058
  8. PREDNISONE. [Concomitant]
     Active Substance: PREDNISONE
  9. KETOROLAC [Concomitant]
     Active Substance: KETOROLAC TROMETHAMINE
  10. BERINERT [Suspect]
     Active Substance: HUMAN C1-ESTERASE INHIBITOR
     Indication: HEREDITARY ANGIOEDEMA WITH NORMAL C1 ESTERASE INHIBITOR
     Dosage: 4500 INTERNATIONAL UNIT, TIW (PHROPHYLACTIC)
     Route: 058
     Dates: start: 20170903
  11. PARACETAMOL [Concomitant]
     Active Substance: ACETAMINOPHEN

REACTIONS (5)
  - Hereditary angioedema [Recovered/Resolved with Sequelae]
  - Intentional product use issue [Unknown]
  - Product use in unapproved indication [Unknown]
  - No adverse event [Unknown]
  - Hereditary angioedema [Recovered/Resolved]

NARRATIVE: CASE EVENT DATE: 2019
